FAERS Safety Report 4851305-1 (Version None)
Quarter: 2005Q4

REPORT INFORMATION
  Report Type: 
  Country: None (occurrence: None)
  Receive Date: 20051209
  Receipt Date: 20051121
  Transmission Date: 20060501
  Serious: Yes (Hospitalization)
  Sender: FDA-Public Use
  Company Number: TRP_0658_2005

PATIENT
  Age: 55 Year
  Sex: Male
  Weight: 83.9154 kg

DRUGS (10)
  1. RIBASPHERE [Suspect]
     Indication: HEPATITIS C
     Dosage: DF PO
     Route: 048
     Dates: start: 20050630, end: 20051007
  2. RIBASPHERE [Suspect]
     Indication: HEPATITIS C
     Dosage: DF PO
     Route: 048
     Dates: start: 20051011
  3. PEG-INTRON [Suspect]
     Indication: HEPATITIS C
     Dosage: DF SC
     Route: 058
     Dates: start: 20050630
  4. AMBIEN [Concomitant]
  5. ESTER C-PLUS [Concomitant]
  6. LACTULOSE [Concomitant]
  7. MORPHINE SULFATE [Concomitant]
  8. MS CONTIN EXTENDED RELEASE [Concomitant]
  9. MULTIVITAMIN [Concomitant]
  10. XANAX [Concomitant]

REACTIONS (2)
  - OROPHARYNGITIS FUNGAL [None]
  - WHITE BLOOD CELL COUNT DECREASED [None]
